FAERS Safety Report 11065733 (Version 3)
Quarter: 2016Q4

REPORT INFORMATION
  Report Type: Spontaneous
  Country: JP (occurrence: JP)
  Receive Date: 20150425
  Receipt Date: 20161210
  Transmission Date: 20170206
  Serious: Yes (Death, Life-Threatening)
  Sender: FDA-Public Use
  Company Number: JP-ACCORD-030301

PATIENT
  Age: 83 Year
  Sex: Female
  Weight: 40.4 kg

DRUGS (4)
  1. FLUOROURACIL. [Suspect]
     Active Substance: FLUOROURACIL
     Indication: COLON CANCER STAGE IV
     Dosage: FOLFIRI+CMAB?AT 80% DOSAGE
  2. IRINOTECAN [Suspect]
     Active Substance: IRINOTECAN
     Indication: COLON CANCER STAGE IV
     Dosage: FOLFIRI+CMAB?AT 80% DOSAGE
  3. FOLINIC ACID [Suspect]
     Active Substance: LEUCOVORIN
     Indication: COLON CANCER STAGE IV
     Dosage: FOLFIRI+CMAB?AT 80% DOSAGE
  4. CETUXIMAB [Suspect]
     Active Substance: CETUXIMAB
     Indication: COLON CANCER STAGE IV
     Dosage: FOLFIRI+CMAB?10 MG/KG, 400 MG/BODY FOR USE AT INTERVALS OF 2 WEEKS

REACTIONS (5)
  - Pneumonia aspiration [Unknown]
  - Multiple organ dysfunction syndrome [Fatal]
  - Tumour lysis syndrome [Recovering/Resolving]
  - Shock [Unknown]
  - Ileus [Recovering/Resolving]
